FAERS Safety Report 6983889-1 (Version None)
Quarter: 2010Q3

REPORT INFORMATION
  Report Type: 
  Country: None (occurrence: None)
  Receive Date: 20100914
  Receipt Date: 20090218
  Transmission Date: 20110219
  Serious: No
  Sender: FDA-Public Use
  Company Number: US-WYE-H08263509

PATIENT
  Age: 39 Year
  Sex: Male

DRUGS (3)
  1. ADVIL LIQUI-GELS [Suspect]
     Dosage: UNKNOWN
     Route: 048
     Dates: start: 20090202
  2. THERAFLU COLD AND COUGH [Suspect]
     Indication: NASOPHARYNGITIS
     Route: 048
     Dates: start: 20090202
  3. THERAFLU COLD AND COUGH [Suspect]
     Indication: INFLUENZA

REACTIONS (5)
  - ABNORMAL DREAMS [None]
  - HALLUCINATION [None]
  - HYPERHIDROSIS [None]
  - INSOMNIA [None]
  - NIGHTMARE [None]
